FAERS Safety Report 7627115-9 (Version None)
Quarter: 2011Q3

REPORT INFORMATION
  Report Type: 
  Country: None (occurrence: None)
  Receive Date: 20110721
  Receipt Date: 20110719
  Transmission Date: 20111222
  Serious: Yes (Other)
  Sender: FDA-Public Use
  Company Number: JP-PFIZER INC-2011157547

PATIENT
  Age: 40 Year
  Sex: Male

DRUGS (3)
  1. DEPAS [Concomitant]
     Dosage: ONCE DAILY AFTER DINNER
  2. ALPRAZOLAM [Suspect]
     Dosage: 0.4 MG, 2X/DAY
  3. DOGMATYL [Concomitant]
     Dosage: 3 TIMES DAILY AFTER MEAL

REACTIONS (2)
  - GAIT DISTURBANCE [None]
  - HYPOAESTHESIA [None]
